FAERS Safety Report 5447360-0 (Version None)
Quarter: 2007Q3

REPORT INFORMATION
  Report Type: 
  Country: None (occurrence: None)
  Receive Date: 20070905
  Receipt Date: 20070905
  Transmission Date: 20080115
  Serious: Yes (Hospitalization)
  Sender: FDA-Public Use
  Company Number: None

PATIENT
  Age: 58 Year
  Sex: Male

DRUGS (5)
  1. PROPRANOLOL [Suspect]
     Indication: CACHEXIA
     Dosage: 40MG 20MG BREAKFAST 10MG LUNCH 10MG EVENING ORAL
     Route: 048
     Dates: start: 20070704, end: 20070901
  2. PROPRANOLOL [Suspect]
  3. ETODOLAC [Suspect]
     Indication: CACHEXIA
     Dosage: 200MG BD ORAL
     Route: 048
     Dates: start: 20070704, end: 20070709
  4. FAMOTIDINE [Concomitant]
  5. NEUROBION [Concomitant]

REACTIONS (3)
  - MALIGNANT NEOPLASM PROGRESSION [None]
  - METASTASES TO CENTRAL NERVOUS SYSTEM [None]
  - NON-SMALL CELL LUNG CANCER [None]
